FAERS Safety Report 10781373 (Version 4)
Quarter: 2015Q4

REPORT INFORMATION
  Report Type: Spontaneous
  Country: US (occurrence: US)
  Receive Date: 20150210
  Receipt Date: 20151020
  Transmission Date: 20160304
  Serious: No
  Sender: FDA-Public Use
  Company Number: US-GLAXOSMITHKLINE-A1087704A

PATIENT

DRUGS (4)
  1. FLOLAN [Suspect]
     Active Substance: EPOPROSTENOL SODIUM
     Indication: PULMONARY ARTERIAL HYPERTENSION
     Dosage: 31.86 NG/KG/MIN
     Dates: start: 20130703
  2. REMODULIN [Suspect]
     Active Substance: TREPROSTINIL
     Indication: PULMONARY ARTERIAL HYPERTENSION
     Dosage: UNK
  3. FLOLAN [Suspect]
     Active Substance: EPOPROSTENOL SODIUM
     Indication: PRODUCT USED FOR UNKNOWN INDICATION
     Dosage: PUMP RATE 98 ML/DAY, VIAL STRENGTH: DILUENT (NO OTHER DOSING PARAMETERS REPORTED)
     Route: 042
     Dates: start: 20130703
  4. FLOLAN [Suspect]
     Active Substance: EPOPROSTENOL SODIUM
     Dosage: 31.86 NG/KG/MIN

REACTIONS (3)
  - Skin irritation [Recovered/Resolved]
  - Product preparation error [Unknown]
  - Product quality issue [Unknown]
